FAERS Safety Report 4962181-0 (Version None)
Quarter: 2006Q2

REPORT INFORMATION
  Report Type: 
  Country: None (occurrence: None)
  Receive Date: 20060404
  Receipt Date: 20060106
  Transmission Date: 20061013
  Serious: Yes (Hospitalization, Other)
  Sender: FDA-Public Use
  Company Number: PHRM2006FR00481

PATIENT
  Age: 20 Year
  Sex: Male
  Weight: 113 kg

DRUGS (3)
  1. TRILEPTAL [Suspect]
     Indication: POST-TRAUMATIC EPILEPSY
     Dosage: 1 DF DAILY
     Route: 048
     Dates: start: 20010101
  2. CORTICOSTEROID NOS [Concomitant]
     Indication: ASTHMA
  3. SEROPRAM [Concomitant]
     Route: 048

REACTIONS (8)
  - ANTINUCLEAR ANTIBODY INCREASED [None]
  - DNA ANTIBODY POSITIVE [None]
  - LIVER FUNCTION TEST ABNORMAL [None]
  - POLYARTHRITIS [None]
  - PROTEINURIA [None]
  - RED BLOOD CELL SEDIMENTATION RATE INCREASED [None]
  - SYSTEMIC LUPUS ERYTHEMATOSUS [None]
  - SYSTEMIC LUPUS ERYTHEMATOSUS RASH [None]
